FAERS Safety Report 5868726-0 (Version None)
Quarter: 2008Q3

REPORT INFORMATION
  Report Type: 
  Country: None (occurrence: None)
  Receive Date: 20080903
  Receipt Date: 20080826
  Transmission Date: 20090109
  Serious: Yes (Death, Hospitalization, Other)
  Sender: FDA-Public Use
  Company Number: US-ASTRAZENECA-2001UW11713

PATIENT
  Age: 80 Year
  Sex: Male

DRUGS (4)
  1. CASODEX [Suspect]
     Route: 048
  2. ZOLADEX [Suspect]
     Indication: PROSTATE CANCER
     Route: 058
     Dates: start: 19961126
  3. GLYBURIDE [Concomitant]
  4. TUMS [Concomitant]

REACTIONS (12)
  - ABNORMAL BEHAVIOUR [None]
  - ANGER [None]
  - ATROPHY [None]
  - CEREBRAL ATROPHY [None]
  - DEATH [None]
  - MEDICAL DEVICE IMPLANTATION [None]
  - MONOPLEGIA [None]
  - PENIS DISORDER [None]
  - PROSTATIC SPECIFIC ANTIGEN INCREASED [None]
  - SPINAL CORD DISORDER [None]
  - TESTICULAR DISORDER [None]
  - THINKING ABNORMAL [None]
